FAERS Safety Report 5249875-7 (Version None)
Quarter: 2007Q1

REPORT INFORMATION
  Report Type: 
  Country: None (occurrence: None)
  Receive Date: 20070228
  Receipt Date: 20070126
  Transmission Date: 20070707
  Serious: Yes (Hospitalization)
  Sender: FDA-Public Use
  Company Number: US-AMGEN-US208633

PATIENT
  Sex: Female
  Weight: 63.6 kg

DRUGS (1)
  1. ENBREL [Suspect]
     Indication: RHEUMATOID ARTHRITIS
     Route: 058
     Dates: start: 20040501

REACTIONS (5)
  - CELLULITIS [None]
  - HIP SURGERY [None]
  - INJECTION SITE REACTION [None]
  - STREPTOCOCCAL INFECTION [None]
  - TOXIC SHOCK SYNDROME [None]
